FAERS Safety Report 12114504 (Version 1)
Quarter: 2016Q1

REPORT INFORMATION
  Report Type: Spontaneous
  Country: US (occurrence: US)
  Receive Date: 20160225
  Receipt Date: 20160225
  Transmission Date: 20160526
  Serious: Yes (Other)
  Sender: FDA-Public Use
  Company Number: US-SA-2016SA037752

PATIENT
  Age: 49 Year
  Sex: Male

DRUGS (16)
  1. COQ10 [Concomitant]
     Active Substance: UBIDECARENONE
  2. TURMERIC [Concomitant]
     Active Substance: TURMERIC
  3. ZETIA [Concomitant]
     Active Substance: EZETIMIBE
  4. VITAMIN E [Concomitant]
     Active Substance: .ALPHA.-TOCOPHEROL
  5. CLOPIDOGREL [Concomitant]
     Active Substance: CLOPIDOGREL BISULFATE
  6. BENAZEPRIL [Concomitant]
     Active Substance: BENAZEPRIL HYDROCHLORIDE
  7. AMLODIPINE BESILATE [Concomitant]
     Active Substance: AMLODIPINE BESYLATE
  8. ASPIRIN. [Concomitant]
     Active Substance: ASPIRIN
  9. PRALUENT [Suspect]
     Active Substance: ALIROCUMAB
     Indication: HYPERCHOLESTEROLAEMIA
     Route: 058
  10. CALCIUM/ZINC/MAGNESIUM [Concomitant]
  11. VITAMIN D3 [Concomitant]
     Active Substance: CHOLECALCIFEROL
  12. POTASSIUM [Concomitant]
     Active Substance: POTASSIUM
  13. ALIROCUMAB PREFILLED PEN [Concomitant]
     Active Substance: ALIROCUMAB
     Indication: HYPERCHOLESTEROLAEMIA
  14. METOPROLOL TARTRATE. [Concomitant]
     Active Substance: METOPROLOL TARTRATE
  15. PEPCID [Concomitant]
     Active Substance: FAMOTIDINE
  16. FISH OIL [Concomitant]
     Active Substance: FISH OIL

REACTIONS (1)
  - Stent placement [Unknown]
